FAERS Safety Report 21320151 (Version 1)
Quarter: 2022Q3

REPORT INFORMATION
  Report Type: Spontaneous
  Country: US (occurrence: US)
  Receive Date: 20220911
  Receipt Date: 20220911
  Transmission Date: 20221026
  Serious: No
  Sender: FDA-Public Use
  Company Number: US-SA-SAC20220908000773

PATIENT
  Age: 40 Year
  Sex: Female
  Weight: 79.3 kg

DRUGS (1)
  1. DUPIXENT [Suspect]
     Active Substance: DUPILUMAB
     Indication: Dermatitis atopic
     Dosage: 300MG QOW
     Route: 058
     Dates: start: 20220823

REACTIONS (8)
  - Injection site pruritus [Unknown]
  - Injection site swelling [Unknown]
  - Injection site vesicles [Unknown]
  - Injection site erythema [Unknown]
  - Injection site exfoliation [Unknown]
  - Injection site dryness [Unknown]
  - Injection site pain [Not Recovered/Not Resolved]
  - Injection site inflammation [Unknown]

NARRATIVE: CASE EVENT DATE: 20220902
